FAERS Safety Report 16716794 (Version 1)
Quarter: 2019Q3

REPORT INFORMATION
  Report Type: Spontaneous
  Country: US (occurrence: US)
  Receive Date: 20190702
  Receipt Date: 20190702
  Transmission Date: 20191005
  Serious: Yes (Other)
  Sender: FDA-Public Use
  Company Number: None

PATIENT
  Age: 35 Hour
  Sex: Male
  Weight: 105.14 kg

DRUGS (1)
  1. BUPROPION HCL 150MG/300MG [Suspect]
     Active Substance: BUPROPION HYDROCHLORIDE
     Indication: DEPRESSION
     Route: 048
     Dates: start: 20190128

REACTIONS (2)
  - Product substitution issue [None]
  - Headache [None]
